APPROVED DRUG PRODUCT: PRANDIMET
Active Ingredient: METFORMIN HYDROCHLORIDE; REPAGLINIDE
Strength: 500MG;2MG
Dosage Form/Route: TABLET;ORAL
Application: N022386 | Product #002
Applicant: NOVO NORDISK INC
Approved: Jun 23, 2008 | RLD: Yes | RS: No | Type: DISCN